FAERS Safety Report 5943550-9 (Version None)
Quarter: 2008Q4

REPORT INFORMATION
  Report Type: 
  Country: None (occurrence: None)
  Receive Date: 20081106
  Receipt Date: 20081027
  Transmission Date: 20090506
  Serious: Yes (Hospitalization)
  Sender: FDA-Public Use
  Company Number: GB-WYE-H06395608

PATIENT
  Sex: Male

DRUGS (4)
  1. PANTOPRAZOLE SODIUM [Suspect]
     Route: 042
  2. IMIPENEM [Concomitant]
     Indication: ABDOMINAL INFECTION
     Route: 042
  3. CASPOFUNGIN ACETATE [Concomitant]
     Indication: ABDOMINAL INFECTION
     Route: 042
  4. ACETAMINOPHEN [Concomitant]
     Indication: PAIN
     Route: 042

REACTIONS (1)
  - GASTROINTESTINAL HAEMORRHAGE [None]
